FAERS Safety Report 13350788 (Version 1)
Quarter: 2017Q1

REPORT INFORMATION
  Report Type: Spontaneous
  Country: JP (occurrence: JP)
  Receive Date: 20170320
  Receipt Date: 20170320
  Transmission Date: 20170429
  Serious: Yes (Death)
  Sender: FDA-Public Use
  Company Number: JP-MALLINCKRODT-T201701053

PATIENT
  Age: 57 Year
  Sex: Male
  Weight: 67 kg

DRUGS (17)
  1. ALOSENN [Concomitant]
     Active Substance: SENNA LEAF
     Dosage: 0.5 G
     Route: 048
     Dates: end: 20140514
  2. LENDORMIN DAINIPPO [Concomitant]
     Active Substance: BROTIZOLAM
     Dosage: 0.25 MG
     Route: 048
     Dates: start: 20140512, end: 20140512
  3. MAGMITT [Concomitant]
     Active Substance: MAGNESIUM OXIDE
     Dosage: 750 MG
     Route: 048
     Dates: end: 20140510
  4. OXINORM [Concomitant]
     Active Substance: OXYCODONE HYDROCHLORIDE
     Indication: ANALGESIC THERAPY
     Dosage: 7.5-10 MG, PRN
     Route: 048
     Dates: start: 20140506
  5. RINDERON V [Concomitant]
     Active Substance: BETAMETHASONE VALERATE
     Dosage: 4 MG
     Route: 051
     Dates: start: 20140516, end: 20140516
  6. TRANSAMIN [Concomitant]
     Active Substance: TRANEXAMIC ACID
     Dosage: 750 MG
     Route: 048
     Dates: end: 20140514
  7. SEDIEL [Concomitant]
     Active Substance: TANDOSPIRONE
     Dosage: 10 MG
     Route: 048
     Dates: start: 20140508, end: 20140514
  8. AMOBAN [Concomitant]
     Active Substance: ZOPICLONE
     Dosage: 7.5 MG
     Route: 048
     Dates: start: 20140514, end: 20140516
  9. METHADONE [Suspect]
     Active Substance: METHADONE HYDROCHLORIDE
     Indication: CANCER PAIN
     Dosage: 5 MG, 15 MG DAILY DOSE
     Route: 048
     Dates: start: 20140507
  10. LYRICA [Concomitant]
     Active Substance: PREGABALIN
     Indication: ANALGESIC THERAPY
     Dosage: 150 MG
     Route: 048
     Dates: end: 20140514
  11. RINDERON V [Concomitant]
     Active Substance: BETAMETHASONE VALERATE
     Indication: ANALGESIC THERAPY
     Dosage: 2 MG
     Route: 048
     Dates: end: 20140514
  12. DESYREL [Concomitant]
     Active Substance: TRAZODONE HYDROCHLORIDE
     Dosage: 50 MG
     Route: 048
     Dates: start: 20140514, end: 20140516
  13. CYTOTEC [Concomitant]
     Active Substance: MISOPROSTOL
     Dosage: 600 MG
     Route: 048
     Dates: end: 20140514
  14. MORPHINE [Concomitant]
     Active Substance: MORPHINE
     Indication: ANALGESIC THERAPY
     Dosage: 120 MG
     Route: 051
     Dates: start: 20140515, end: 20140516
  15. ADONA [Concomitant]
     Active Substance: CARBAZOCHROME SODIUM SULFONATE
     Dosage: 90 MG
     Route: 048
     Dates: end: 20140514
  16. NAIXAN [Concomitant]
     Active Substance: NAPROXEN SODIUM
     Indication: ANALGESIC THERAPY
     Dosage: 300 MG
     Route: 048
     Dates: end: 20140514
  17. SERENACE [Concomitant]
     Active Substance: HALOPERIDOL
     Indication: ANALGESIC THERAPY
     Dosage: 2.5 MG
     Route: 051
     Dates: start: 20140515, end: 20140516

REACTIONS (1)
  - Soft tissue sarcoma [Fatal]

NARRATIVE: CASE EVENT DATE: 20140516
